FAERS Safety Report 5699802-3 (Version None)
Quarter: 2008Q2

REPORT INFORMATION
  Report Type: 
  Country: None (occurrence: None)
  Receive Date: 20080407
  Receipt Date: 20080325
  Transmission Date: 20081010
  Serious: Yes (Hospitalization)
  Sender: FDA-Public Use
  Company Number: FACT0800046

PATIENT
  Age: 29 Year
  Sex: Female
  Weight: 54.4 kg

DRUGS (1)
  1. FACTIVE [Suspect]
     Indication: BRONCHOPNEUMONIA
     Dosage: 320 MG, QD, ORAL
     Route: 048
     Dates: start: 20080222, end: 20080222

REACTIONS (4)
  - DRUG ERUPTION [None]
  - DRUG TOXICITY [None]
  - HEART RATE INCREASED [None]
  - RESPIRATORY RATE INCREASED [None]
